FAERS Safety Report 4981383-0 (Version None)
Quarter: 2006Q2

REPORT INFORMATION
  Report Type: 
  Country: None (occurrence: None)
  Receive Date: 20060424
  Receipt Date: 20050321
  Transmission Date: 20061013
  Serious: Yes (Hospitalization, Other)
  Sender: FDA-Public Use
  Company Number: US-MERCK-0503USA03805

PATIENT
  Age: 74 Year
  Sex: Female
  Weight: 68 kg

DRUGS (2)
  1. VIOXX [Suspect]
     Indication: ARTHRALGIA
     Route: 048
     Dates: start: 20000612, end: 20041102
  2. VIOXX [Suspect]
     Route: 048
     Dates: start: 20000612, end: 20041102

REACTIONS (22)
  - ABDOMINAL PAIN LOWER [None]
  - ACUTE MYOCARDIAL INFARCTION [None]
  - CELLULITIS [None]
  - CELLULITIS GANGRENOUS [None]
  - CEREBROVASCULAR ACCIDENT [None]
  - CORONARY ARTERY DISEASE [None]
  - COUGH [None]
  - DIVERTICULITIS [None]
  - DYSPNOEA [None]
  - ENDOCARDITIS [None]
  - GASTROOESOPHAGEAL REFLUX DISEASE [None]
  - HYPERLIPIDAEMIA [None]
  - HYPOKALAEMIA [None]
  - LUNG NEOPLASM [None]
  - NAUSEA [None]
  - PAIN IN EXTREMITY [None]
  - PERICARDIAL EFFUSION [None]
  - PRURITUS [None]
  - PULMONARY EMBOLISM [None]
  - PYREXIA [None]
  - RENAL FAILURE [None]
  - SEPSIS SYNDROME [None]
